FAERS Safety Report 9170154 (Version 1)
Quarter: 2013Q1

REPORT INFORMATION
  Report Type: Spontaneous
  Country: JP (occurrence: JP)
  Receive Date: 20130319
  Receipt Date: 20130319
  Transmission Date: 20140127
  Serious: Yes (Hospitalization)
  Sender: FDA-Public Use
  Company Number: PHHY2013JP026231

PATIENT
  Age: 77 Year
  Sex: 0

DRUGS (2)
  1. RIVASTIGMIN [Suspect]
     Indication: DEMENTIA ALZHEIMER^S TYPE
     Dosage: UNK UKN, UNK
     Route: 062
     Dates: start: 20130205, end: 20130311
  2. HYPEN [Suspect]
     Dosage: UNK UKN, UNK
     Route: 048
     Dates: start: 20130227

REACTIONS (2)
  - Multi-organ failure [Recovered/Resolved]
  - Rash generalised [Unknown]
